FAERS Safety Report 8303445-2 (Version None)
Quarter: 2012Q2

REPORT INFORMATION
  Report Type: 
  Country: None (occurrence: None)
  Receive Date: 20120423
  Receipt Date: 20120413
  Transmission Date: 20120825
  Serious: No
  Sender: FDA-Public Use
  Company Number: US-PFIZER INC-2012057076

PATIENT
  Sex: Male
  Weight: 68.027 kg

DRUGS (7)
  1. FINASTERIDE [Concomitant]
     Indication: PROSTATIC DISORDER
     Dosage: 5 MG, DAILY
  2. TRAVATAN [Suspect]
     Dosage: 1 DF, 1X/DAY OU
     Dates: start: 20110307, end: 20110310
  3. NEXIUM [Concomitant]
     Indication: ABDOMINAL PAIN UPPER
     Dosage: 40 MG, DAILY
  4. NEXIUM [Concomitant]
     Indication: HYPERCHLORHYDRIA
  5. LATANOPROST [Suspect]
     Indication: GLAUCOMA
     Dosage: 1 DF, 1X/DAY OU
     Dates: start: 20111223, end: 20111224
  6. LATANOPROST [Suspect]
     Indication: HEADACHE
  7. TRAVATAN [Suspect]
     Indication: DYSURIA
     Dosage: 1 DF, 1X/DAY OU
     Dates: start: 20080122, end: 20080124

REACTIONS (1)
  - HEADACHE [None]
